FAERS Safety Report 6005980-9 (Version None)
Quarter: 2008Q4

REPORT INFORMATION
  Report Type: 
  Country: None (occurrence: None)
  Receive Date: 20081217
  Receipt Date: 20081204
  Transmission Date: 20090506
  Serious: Yes (Other)
  Sender: FDA-Public Use
  Company Number: DE-ELI_LILLY_AND_COMPANY-DE200812001142

PATIENT
  Age: 49 Year
  Sex: Male

DRUGS (5)
  1. BYETTA [Suspect]
     Indication: TYPE 2 DIABETES MELLITUS
     Dosage: 10 D/F, 2/D
     Route: 058
     Dates: start: 20080701, end: 20081124
  2. PIOGLITAZONE HYDROCHLORIDE [Concomitant]
     Dosage: 15 D/F, UNKNOWN
     Route: 065
  3. METFORMIN HYDROCHLORIDE [Concomitant]
     Dosage: 850 D/F, UNKNOWN
     Route: 065
  4. DIOVAN [Concomitant]
     Dosage: 320 D/F, UNKNOWN
     Route: 065
  5. AMLODIPINE [Concomitant]
     Dosage: 10 D/F, UNKNOWN
     Route: 065

REACTIONS (1)
  - PANCREATITIS ACUTE [None]
